FAERS Safety Report 6798041-2 (Version None)
Quarter: 2010Q2

REPORT INFORMATION
  Report Type: 
  Country: None (occurrence: None)
  Receive Date: 20100616
  Receipt Date: 20100607
  Transmission Date: 20101027
  Serious: Yes (Other)
  Sender: FDA-Public Use
  Company Number: 2010SP031978

PATIENT
  Age: 50 Year
  Sex: Male

DRUGS (3)
  1. SAPHRIS [Suspect]
     Indication: SCHIZOPHRENIA
     Dosage: 10 MG; QD; SL; 5 MG; QD; SL;10; MG; QD, SL
     Route: 060
     Dates: start: 20100101, end: 20100101
  2. SAPHRIS [Suspect]
     Indication: SCHIZOPHRENIA
     Dosage: 10 MG; QD; SL; 5 MG; QD; SL;10; MG; QD, SL
     Route: 060
     Dates: start: 20100101, end: 20100101
  3. SAPHRIS [Suspect]
     Indication: SCHIZOPHRENIA
     Dosage: 10 MG; QD; SL; 5 MG; QD; SL;10; MG; QD, SL
     Route: 060
     Dates: start: 20100101

REACTIONS (2)
  - BLOOD AMYLASE INCREASED [None]
  - LIPASE INCREASED [None]
